FAERS Safety Report 23417779 (Version 1)
Quarter: 2024Q1

REPORT INFORMATION
  Report Type: Spontaneous
  Country: US (occurrence: US)
  Receive Date: 20240118
  Receipt Date: 20240118
  Transmission Date: 20240410
  Serious: No
  Sender: FDA-Public Use
  Company Number: ENDG23-01554

PATIENT
  Sex: Female

DRUGS (2)
  1. PERCOCET [Suspect]
     Active Substance: ACETAMINOPHEN\OXYCODONE HYDROCHLORIDE
     Indication: Arthralgia
     Dosage: UNK UNKNOWN, UNKNOWN
     Route: 065
  2. LYBALVI [Suspect]
     Active Substance: OLANZAPINE\SAMIDORPHAN L-MALATE
     Indication: Bipolar I disorder
     Dosage: 10 MG/10 MG, DAILY
     Route: 048

REACTIONS (5)
  - Musculoskeletal stiffness [Unknown]
  - Muscle rigidity [Unknown]
  - Myalgia [Unknown]
  - Diarrhoea [Unknown]
  - Contraindicated product administered [Unknown]
